FAERS Safety Report 20007607 (Version 3)
Quarter: 2022Q1

REPORT INFORMATION
  Report Type: Spontaneous
  Country: AU (occurrence: AU)
  Receive Date: 20211028
  Receipt Date: 20220323
  Transmission Date: 20220424
  Serious: Yes (Other)
  Sender: FDA-Public Use
  Company Number: AU-PFIZER INC-202101432466

PATIENT

DRUGS (1)
  1. LYRICA [Suspect]
     Active Substance: PREGABALIN
     Indication: Pain management
     Dosage: 75 MG

REACTIONS (10)
  - Loss of consciousness [Unknown]
  - Disorganised speech [Unknown]
  - Drug ineffective [Unknown]
  - Dizziness [Unknown]
  - Disorientation [Unknown]
  - Memory impairment [Unknown]
  - Peripheral swelling [Unknown]
  - Fatigue [Unknown]
  - Somnolence [Unknown]
  - Withdrawal syndrome [Unknown]
